FAERS Safety Report 7588942-X (Version None)
Quarter: 2011Q3

REPORT INFORMATION
  Report Type: 
  Country: None (occurrence: None)
  Receive Date: 20110705
  Receipt Date: 20110615
  Transmission Date: 20111222
  Serious: Yes (Hospitalization)
  Sender: FDA-Public Use
  Company Number: US-BAYER-201032316NA

PATIENT
  Age: 21 Year
  Sex: Female
  Weight: 52.154 kg

DRUGS (21)
  1. ADVAIR DISKUS 100/50 [Concomitant]
  2. CYMBALTA [Concomitant]
  3. EPIPEN [Concomitant]
  4. FEXOFENADINE [Concomitant]
  5. ALBUTEROL [Concomitant]
  6. AXERT [Concomitant]
  7. HYDROCODONE BITARTRATE [Concomitant]
  8. NEXIUM [Concomitant]
  9. YAZ [Suspect]
  10. SPIRONOLACTONE [Concomitant]
     Indication: LYMPHOEDEMA
     Dosage: UNK UNK, QD
  11. SINGULAIR [Concomitant]
  12. ASACOL [Concomitant]
  13. CLARITIN [Concomitant]
  14. YASMIN [Suspect]
     Indication: CONTRACEPTION
     Dosage: UNK
     Route: 048
     Dates: start: 20060724, end: 20080623
  15. AMLODIPINE [Concomitant]
  16. HYOSCYAMINE [Concomitant]
  17. METHOCARBAMOL [Concomitant]
  18. TOPAMAX [Concomitant]
  19. PAXIL [Concomitant]
  20. DROSPIRENONE AND ETHINYL ESTRADIOL [Suspect]
     Indication: CONTRACEPTION
     Dosage: UNK
     Dates: start: 20090201, end: 20090425
  21. TRAMADOL HCL [Concomitant]

REACTIONS (3)
  - CHOLECYSTITIS CHRONIC [None]
  - CHOLELITHIASIS [None]
  - GALLBLADDER INJURY [None]
